FAERS Safety Report 13554373 (Version 2)
Quarter: 2017Q2

REPORT INFORMATION
  Report Type: Spontaneous
  Country: US (occurrence: US)
  Receive Date: 20170517
  Receipt Date: 20170614
  Transmission Date: 20170830
  Serious: No
  Sender: FDA-Public Use
  Company Number: US-SHIRE-US201710986

PATIENT
  Age: 74 Year
  Sex: Female
  Weight: 68.27 kg

DRUGS (3)
  1. DORZOLAMIDE HCL TIMOLOL MALEATE [Concomitant]
     Active Substance: DORZOLAMIDE HYDROCHLORIDE\TIMOLOL MALEATE
     Indication: GLAUCOMA
     Dosage: 1 UNK, 2X/DAY:BID IN BOTH EYES
     Route: 047
     Dates: start: 201611
  2. XIIDRA [Suspect]
     Active Substance: LIFITEGRAST
     Indication: DRY EYE
     Dosage: 1 GTT, 2X/DAY:BID IN BOTH EYES
     Route: 047
     Dates: start: 20161107
  3. SIMVASTATIN. [Concomitant]
     Active Substance: SIMVASTATIN
     Indication: BLOOD CHOLESTEROL
     Dosage: 20 MG, 1X/DAY:QD
     Route: 048
     Dates: start: 201611

REACTIONS (3)
  - Instillation site reaction [Recovered/Resolved]
  - Drug ineffective [Unknown]
  - Eye discharge [Unknown]

NARRATIVE: CASE EVENT DATE: 201611
